FAERS Safety Report 4496956-1 (Version None)
Quarter: 2004Q4

REPORT INFORMATION
  Report Type: 
  Country: None (occurrence: None)
  Receive Date: 20041109
  Receipt Date: 20041104
  Transmission Date: 20050328
  Serious: Yes (Life-Threatening, Hospitalization, Disabling)
  Sender: FDA-Public Use
  Company Number: US-MERCK-0411USA00724

PATIENT
  Age: 60 Year
  Sex: Male

DRUGS (7)
  1. VIOXX [Suspect]
     Indication: RHEUMATOID ARTHRITIS
     Route: 048
     Dates: start: 19990501, end: 20040930
  2. NORVASC [Concomitant]
     Route: 065
  3. ZESTORETIC [Concomitant]
     Route: 065
  4. ZOCOR [Concomitant]
     Route: 065
  5. [THERAPY UNSPECIFIED] [Concomitant]
     Route: 065
  6. [THERAPY UNSPECIFIED] [Concomitant]
     Route: 065
  7. ASPIRIN [Concomitant]
     Route: 065

REACTIONS (4)
  - BLOOD POTASSIUM DECREASED [None]
  - CEREBROVASCULAR ACCIDENT [None]
  - HEADACHE [None]
  - HYPERTENSION [None]
